FAERS Safety Report 9454411 (Version 3)
Quarter: 2013Q4

REPORT INFORMATION
  Report Type: Spontaneous
  Country: US (occurrence: US)
  Receive Date: 20130812
  Receipt Date: 20131009
  Transmission Date: 20140711
  Serious: Yes (Hospitalization)
  Sender: FDA-Public Use
  Company Number: US-BAXTER-2013BAX031329

PATIENT
  Age: 46 Year
  Sex: Male
  Weight: 75 kg

DRUGS (7)
  1. FEIBA NF [Suspect]
     Indication: FACTOR VIII DEFICIENCY
     Route: 042
  2. FEIBA NF [Suspect]
     Dosage: 4000 UNITS
     Route: 042
     Dates: start: 20130523
  3. NORVIR [Concomitant]
     Indication: HIV TEST POSITIVE
     Route: 048
  4. LEXIVA [Concomitant]
     Indication: HIV TEST POSITIVE
     Route: 048
  5. TRUVADA [Concomitant]
     Indication: HIV TEST POSITIVE
     Route: 048
  6. PANTOPRAZOLE [Concomitant]
     Indication: GASTRIC DISORDER
     Route: 048
  7. MULTIVITAMIN [Concomitant]
     Indication: PRODUCT USED FOR UNKNOWN INDICATION
     Route: 048

REACTIONS (4)
  - Cerebral haemorrhage [Recovering/Resolving]
  - Aphasia [Recovering/Resolving]
  - Reading disorder [Recovering/Resolving]
  - Dysgraphia [Recovering/Resolving]
